FAERS Safety Report 7111401-5 (Version None)
Quarter: 2010Q4

REPORT INFORMATION
  Report Type: 
  Country: None (occurrence: None)
  Receive Date: 20101118
  Receipt Date: 20101109
  Transmission Date: 20110411
  Serious: Yes (Hospitalization)
  Sender: FDA-Public Use
  Company Number: US-JNJFOC-20100709058

PATIENT
  Sex: Female
  Weight: 99.34 kg

DRUGS (1)
  1. REMICADE [Suspect]
     Indication: CROHN'S DISEASE
     Route: 042

REACTIONS (4)
  - ONYCHOMYCOSIS [None]
  - PRURITUS [None]
  - RHEUMATOID ARTHRITIS [None]
  - SWELLING [None]
